FAERS Safety Report 7397566-9 (Version None)
Quarter: 2011Q2

REPORT INFORMATION
  Report Type: 
  Country: None (occurrence: None)
  Receive Date: 20110406
  Receipt Date: 20110401
  Transmission Date: 20111010
  Serious: Yes (Hospitalization)
  Sender: FDA-Public Use
  Company Number: US-PFIZER INC-2010176004

PATIENT
  Sex: Female
  Weight: 62.585 kg

DRUGS (5)
  1. ZOLPIDEM [Concomitant]
     Dosage: 5 MG, AT BED TIME
     Route: 048
     Dates: start: 20101102
  2. PACLITAXEL [Suspect]
     Indication: BREAST CANCER
     Dosage: 80 MG/M2, WEEKLY
     Route: 042
     Dates: start: 20100915, end: 20101207
  3. SIMVASTATIN [Concomitant]
     Dosage: 10 MG AT BED TIME
     Route: 048
     Dates: start: 20100921
  4. SUNITINIB MALATE [Suspect]
     Indication: BREAST CANCER
     Dosage: 25 MG, 1X/DAY
     Route: 048
     Dates: start: 20100915, end: 20101213
  5. CLONAZEPAM [Concomitant]
     Indication: BREAST CANCER
     Dosage: 0.5 MG AT BED TIME
     Route: 048
     Dates: start: 19920101

REACTIONS (1)
  - PNEUMONIA [None]
